FAERS Safety Report 17833865 (Version 2)
Quarter: 2020Q2

REPORT INFORMATION
  Report Type: Spontaneous
  Country: US (occurrence: US)
  Receive Date: 20200528
  Receipt Date: 20200608
  Transmission Date: 20200714
  Serious: Yes (Disabling, Other)
  Sender: FDA-Public Use
  Company Number: US-SA-2020SA135571

PATIENT

DRUGS (1)
  1. ZANTAC 75 [Suspect]
     Active Substance: RANITIDINE HYDROCHLORIDE
     Dosage: UNK UNK, QD (FOR OVER 20 YEARS)

REACTIONS (5)
  - Hepatic cancer [Unknown]
  - Loss of personal independence in daily activities [Unknown]
  - Injury [Unknown]
  - Anxiety [Unknown]
  - Colon cancer [Unknown]

NARRATIVE: CASE EVENT DATE: 201804
